FAERS Safety Report 5331785-8 (Version None)
Quarter: 2007Q2

REPORT INFORMATION
  Report Type: 
  Country: None (occurrence: None)
  Receive Date: 20070517
  Receipt Date: 20070508
  Transmission Date: 20071010
  Serious: Yes (Hospitalization)
  Sender: FDA-Public Use
  Company Number: 310042K07USA

PATIENT
  Age: 28 Year
  Sex: Female

DRUGS (3)
  1. GONAL-F [Suspect]
     Indication: INFERTILITY
     Dates: start: 20070329, end: 20070401
  2. LUPRON [Suspect]
     Dates: end: 20070401
  3. P4 (PROGESTERONE) [Concomitant]

REACTIONS (3)
  - DRUG EXPOSURE DURING PREGNANCY [None]
  - MULTIPLE PREGNANCY [None]
  - OVARIAN HYPERSTIMULATION SYNDROME [None]
